FAERS Safety Report 8181852-9 (Version None)
Quarter: 2012Q1

REPORT INFORMATION
  Report Type: 
  Country: None (occurrence: None)
  Receive Date: 20120302
  Receipt Date: 20120229
  Transmission Date: 20120608
  Serious: Yes (Other)
  Sender: FDA-Public Use
  Company Number: CA-ROCHE-1031890

PATIENT
  Sex: Female
  Weight: 107.5 kg

DRUGS (5)
  1. AVASTIN [Suspect]
     Indication: GLIOBLASTOMA
     Route: 042
     Dates: start: 20120103
  2. TEMODAL [Concomitant]
  3. KEPPRA [Concomitant]
  4. DEXAMETHASONE [Concomitant]
  5. CLOBAZAM [Concomitant]

REACTIONS (4)
  - FATIGUE [None]
  - PLATELET COUNT DECREASED [None]
  - GAIT DISTURBANCE [None]
  - BALANCE DISORDER [None]
